FAERS Safety Report 5038699-1 (Version None)
Quarter: 2006Q2

REPORT INFORMATION
  Report Type: 
  Country: None (occurrence: None)
  Receive Date: 20060629
  Receipt Date: 20060404
  Transmission Date: 20061013
  Serious: Yes (Other)
  Sender: FDA-Public Use
  Company Number: US-BRISTOL-MYERS SQUIBB COMPANY-13335682

PATIENT

DRUGS (1)
  1. REYATAZ [Suspect]
     Indication: HIV TEST POSITIVE

REACTIONS (1)
  - NEUROPATHY PERIPHERAL [None]
